FAERS Safety Report 9877260 (Version 2)
Quarter: 2014Q1

REPORT INFORMATION
  Report Type: Report from Study
  Country: US (occurrence: US)
  Receive Date: 20140206
  Receipt Date: 20140207
  Transmission Date: 20141002
  Serious: Yes (Other)
  Sender: FDA-Public Use
  Company Number: US-ASTELLAS-2014US001170

PATIENT
  Sex: Female

DRUGS (28)
  1. ERLOTINIB TABLET [Suspect]
     Indication: PRODUCT USED FOR UNKNOWN INDICATION
     Dosage: UNK
     Route: 065
     Dates: start: 2009
  2. ERLOTINIB TABLET [Suspect]
     Dosage: UNK
     Route: 065
     Dates: start: 201005, end: 201011
  3. AVASTIN /01555201/ [Suspect]
     Indication: NON-SMALL CELL LUNG CANCER
     Dosage: 1 IN 1 CYCLICAL
     Route: 041
     Dates: start: 200606
  4. AVASTIN /01555201/ [Suspect]
     Dosage: 1450 MG, 1 IN 1 CYCLICAL
     Route: 042
     Dates: start: 20110815, end: 20110815
  5. AVASTIN /01555201/ [Suspect]
     Dosage: 1450 MG, 1 IN 1 CYCLICAL
     Route: 042
     Dates: start: 20110927
  6. AVASTIN /01555201/ [Suspect]
     Dosage: 960 MG, 1 IN 1 CYLICAL
     Route: 042
     Dates: start: 20111111, end: 20111111
  7. AVASTIN /01555201/ [Suspect]
     Dosage: 1429 MG, 1 IN 1
     Route: 042
     Dates: start: 20111202
  8. AVASTIN /01555201/ [Suspect]
     Dosage: 1415 MG, 1 IN 1
     Route: 042
     Dates: start: 20111223
  9. AVASTIN /01555201/ [Suspect]
     Dosage: 1435 MG, 1 IN 1 CYCLICAL
     Route: 042
     Dates: start: 20120116, end: 20120116
  10. AVASTIN /01555201/ [Suspect]
     Dosage: 1380 MG, UNKNOWN/D
     Route: 042
     Dates: start: 20120320, end: 20120320
  11. CATHFLO ACTIVASE [Suspect]
     Indication: PRODUCT USED FOR UNKNOWN INDICATION
     Dosage: 2 MG, UNKNOWN/D
     Route: 065
     Dates: start: 20120116
  12. ALIMTA [Concomitant]
     Indication: NON-SMALL CELL LUNG CANCER
     Dosage: 1000 MG, PER CYCLE
     Route: 042
     Dates: start: 20110815
  13. ALIMTA [Concomitant]
     Dosage: 995 MG, 1 PER CYCLE
     Route: 042
     Dates: start: 20111223
  14. ALIMTA [Concomitant]
     Dosage: 1000 MG, PER CYCLE
     Route: 042
     Dates: start: 20120116, end: 20120116
  15. ALIMTA [Concomitant]
     Dosage: 985 MG, PER CYCLE
     Route: 042
     Dates: start: 20120227
  16. ALIMTA [Concomitant]
     Dosage: 995 MG, PER CYCLE
     Route: 042
     Dates: start: 20120320
  17. TAXOL [Concomitant]
     Indication: PRODUCT USED FOR UNKNOWN INDICATION
     Dosage: UNK
     Route: 065
  18. CARBOPLATIN [Concomitant]
     Indication: PRODUCT USED FOR UNKNOWN INDICATION
     Dosage: UNK
     Route: 065
     Dates: start: 200705
  19. EMEND                              /01627301/ [Concomitant]
     Dosage: 125 MG, ONCE PER CYCLE
     Route: 065
  20. EMEND                              /01627301/ [Concomitant]
     Dosage: 150 MG, UNKNOWN/D
     Route: 065
     Dates: start: 20111202
  21. DEXAMETHASONE [Concomitant]
     Indication: PRODUCT USED FOR UNKNOWN INDICATION
     Dosage: 20 MG, UNKNOWN/D
     Route: 042
  22. DEXAMETHASONE [Concomitant]
     Dosage: 10 MG, UNKNOWN/D
     Route: 042
     Dates: start: 20111223
  23. DEXAMETHASONE [Concomitant]
     Dosage: 12 MG, UNKNOWN/D
     Route: 042
  24. NEULASTA [Concomitant]
     Indication: PRODUCT USED FOR UNKNOWN INDICATION
     Dosage: 6 MG, UNKNOWN/D
     Route: 058
  25. GEMZAR [Concomitant]
     Indication: PRODUCT USED FOR UNKNOWN INDICATION
     Dosage: UNK
     Route: 065
  26. ALOXI [Concomitant]
     Indication: PRODUCT USED FOR UNKNOWN INDICATION
     Dosage: 0.25 MG, UNKNOWN/D
     Route: 042
  27. CYANOCOBALAMIN [Concomitant]
     Indication: PRODUCT USED FOR UNKNOWN INDICATION
     Dosage: 1000 UG, UNKNOWN/D
     Route: 030
  28. LUPRON DEPOT [Concomitant]
     Indication: PRODUCT USED FOR UNKNOWN INDICATION
     Dosage: 11.25 MG, UNKNOWN/D
     Route: 030

REACTIONS (6)
  - Off label use [Unknown]
  - Pancytopenia [Unknown]
  - Malignant neoplasm progression [Unknown]
  - Pain [Unknown]
  - Body temperature increased [Unknown]
  - Fatigue [Unknown]
